FAERS Safety Report 12807248 (Version 1)
Quarter: 2016Q4

REPORT INFORMATION
  Report Type: Spontaneous
  Country: JP (occurrence: JP)
  Receive Date: 20161004
  Receipt Date: 20161004
  Transmission Date: 20170207
  Serious: Yes (Other)
  Sender: FDA-Public Use
  Company Number: JP-PFIZER INC-2016453970

PATIENT
  Sex: Female

DRUGS (4)
  1. ALDACTONE A 25MG [Suspect]
     Active Substance: SPIRONOLACTONE
     Indication: OEDEMA PERIPHERAL
  2. LASIX [Concomitant]
     Active Substance: FUROSEMIDE
     Dosage: 20 MG, DAILY
     Route: 048
     Dates: start: 2015
  3. ALDACTONE A 25MG [Suspect]
     Active Substance: SPIRONOLACTONE
     Indication: CARDIAC FAILURE
     Dosage: 25 MG, DAILY
     Route: 048
     Dates: start: 201503, end: 201509
  4. LASIX [Concomitant]
     Active Substance: FUROSEMIDE
     Dosage: 60 MG, DAILY
     Route: 048
     Dates: start: 201503

REACTIONS (10)
  - Skin exfoliation [Recovering/Resolving]
  - Intraocular pressure increased [Unknown]
  - Hyperhidrosis [Unknown]
  - Thirst [Unknown]
  - Glaucoma [Unknown]
  - Blood pressure decreased [Unknown]
  - Onychoclasis [Unknown]
  - Ocular discomfort [Unknown]
  - Vulval disorder [Unknown]
  - Dizziness [Unknown]

NARRATIVE: CASE EVENT DATE: 2015
